FAERS Safety Report 15481910 (Version 1)
Quarter: 2018Q4

REPORT INFORMATION
  Report Type: Spontaneous
  Country: US (occurrence: US)
  Receive Date: 20181003
  Receipt Date: 20181003
  Transmission Date: 20190205
  Serious: Yes (Hospitalization)
  Sender: FDA-Public Use
  Company Number: None

PATIENT
  Age: 90 Year
  Sex: Male
  Weight: 116 kg

DRUGS (1)
  1. APIXABAN [Suspect]
     Active Substance: APIXABAN
     Indication: ATRIAL FIBRILLATION
     Route: 048

REACTIONS (5)
  - Subdural haematoma [None]
  - Subarachnoid haemorrhage [None]
  - Fall [None]
  - Loss of consciousness [None]
  - Haemorrhage intracranial [None]

NARRATIVE: CASE EVENT DATE: 20180925
